FAERS Safety Report 9225473 (Version 5)
Quarter: 2014Q3

REPORT INFORMATION
  Report Type: Report from Study
  Country: BR (occurrence: BR)
  Receive Date: 20130411
  Receipt Date: 20140730
  Transmission Date: 20150326
  Serious: Yes (Other)
  Sender: FDA-Public Use
  Company Number: BR-ROCHE-1209560

PATIENT
  Sex: Female
  Weight: 51 kg

DRUGS (7)
  1. ULTRACET [Concomitant]
     Active Substance: ACETAMINOPHEN\TRAMADOL HYDROCHLORIDE
  2. METHOTREXATE [Concomitant]
     Active Substance: METHOTREXATE
  3. MABTHERA [Suspect]
     Active Substance: RITUXIMAB
     Indication: RHEUMATOID ARTHRITIS
     Dosage: LATEST INFUSION WAS ON 10/MAR/2014
     Route: 065
     Dates: start: 20120109
  4. RIVOTRIL [Concomitant]
     Active Substance: CLONAZEPAM
     Indication: DEPRESSION
  5. PREDNISONE. [Concomitant]
     Active Substance: PREDNISONE
  6. ARAVA [Concomitant]
     Active Substance: LEFLUNOMIDE
  7. DORMONID (INJ) [Concomitant]

REACTIONS (13)
  - Arthralgia [Not Recovered/Not Resolved]
  - Erythema [Recovering/Resolving]
  - Dysphonia [Not Recovered/Not Resolved]
  - Musculoskeletal pain [Not Recovered/Not Resolved]
  - Abasia [Recovering/Resolving]
  - Grip strength decreased [Recovering/Resolving]
  - Swelling [Not Recovered/Not Resolved]
  - Formication [Recovered/Resolved]
  - Blood pressure decreased [Recovered/Resolved]
  - Bursitis [Not Recovered/Not Resolved]
  - Erythema [Not Recovered/Not Resolved]
  - Pruritus [Not Recovered/Not Resolved]
  - Lip dry [Not Recovered/Not Resolved]
